FAERS Safety Report 17599837 (Version 1)
Quarter: 2020Q1

REPORT INFORMATION
  Report Type: Spontaneous
  Country: ES (occurrence: ES)
  Receive Date: 20200330
  Receipt Date: 20200330
  Transmission Date: 20200409
  Serious: Yes (Other)
  Sender: FDA-Public Use
  Company Number: ES-BAUSCH-BL-2020-008695

PATIENT
  Age: 82 Year
  Sex: Male

DRUGS (1)
  1. GENTAMICIN. [Suspect]
     Active Substance: GENTAMICIN
     Indication: PRODUCT USED FOR UNKNOWN INDICATION
     Dosage: MAX 250 CRTS
     Route: 065
     Dates: start: 20190715, end: 20190813

REACTIONS (1)
  - Ototoxicity [Recovering/Resolving]

NARRATIVE: CASE EVENT DATE: 20190809
